FAERS Safety Report 5331534-3 (Version None)
Quarter: 2007Q2

REPORT INFORMATION
  Report Type: 
  Country: None (occurrence: None)
  Receive Date: 20070522
  Receipt Date: 20070510
  Transmission Date: 20071010
  Serious: Yes (Other)
  Sender: FDA-Public Use
  Company Number: NO-PFIZER INC-2007029665

PATIENT
  Sex: Male

DRUGS (6)
  1. GENOTROPIN [Suspect]
     Indication: GROWTH RETARDATION
     Dosage: TEXT:0.2-1MG/DAY
     Route: 030
     Dates: start: 20060502, end: 20060628
  2. GENOTROPIN [Suspect]
     Dates: start: 20060801, end: 20061019
  3. NORDITROPIN [Suspect]
     Indication: GROWTH RETARDATION
     Dosage: TEXT:0.1-0.3 MG-FREQ:DAILY
     Dates: start: 20061221, end: 20070126
  4. LEVAXIN [Concomitant]
     Dosage: TEXT:50-100 MICROGRAMS-FREQ:DAILY
  5. CORTISONE ACETATE [Concomitant]
     Dosage: DAILY DOSE:12.5MG-FREQ:TWICE DAILY
  6. TESTOVIRON [Concomitant]
     Dosage: TEXT:1 AMPULLE EVERY FIFITH WEEK

REACTIONS (1)
  - NEUTROPENIA [None]
